FAERS Safety Report 7882720-X (Version None)
Quarter: 2011Q4

REPORT INFORMATION
  Report Type: 
  Country: None (occurrence: None)
  Receive Date: 20111101
  Receipt Date: 20110620
  Transmission Date: 20120403
  Serious: No
  Sender: FDA-Public Use
  Company Number: US-AMGEN-USASP2011031586

PATIENT
  Sex: Female

DRUGS (2)
  1. INTERFERON [Concomitant]
     Indication: HEPATITIS C
     Dosage: UNK
     Dates: start: 20090901, end: 20110301
  2. ENBREL [Suspect]
     Indication: PSORIASIS
     Dosage: 50 MG, QWK
     Dates: start: 20060410

REACTIONS (1)
  - PSORIASIS [None]
